FAERS Safety Report 6774123-6 (Version None)
Quarter: 2010Q2

REPORT INFORMATION
  Report Type: 
  Country: None (occurrence: None)
  Receive Date: 20100617
  Receipt Date: 20100608
  Transmission Date: 20101027
  Serious: No
  Sender: FDA-Public Use
  Company Number: JP-ASTRAZENECA-2010SE23037

PATIENT
  Age: 60 Year
  Sex: Male
  Weight: 72 kg

DRUGS (4)
  1. OMEPRAL [Suspect]
     Indication: GASTRIC ULCER
     Route: 048
     Dates: start: 20100324, end: 20100331
  2. SELBEX [Concomitant]
     Indication: GASTRITIS
     Route: 048
     Dates: start: 20100312, end: 20100326
  3. SAWACILLIN [Concomitant]
     Indication: GASTRIC ULCER
     Route: 048
     Dates: start: 20100324, end: 20100331
  4. CLARITH [Concomitant]
     Indication: GASTRIC ULCER
     Route: 048
     Dates: start: 20100324, end: 20100331

REACTIONS (6)
  - AGEUSIA [None]
  - ATROPHIC GLOSSITIS [None]
  - DRY MOUTH [None]
  - SKIN EXFOLIATION [None]
  - STOMATITIS [None]
  - THIRST [None]
